FAERS Safety Report 5006493-3 (Version None)
Quarter: 2006Q2

REPORT INFORMATION
  Report Type: 
  Country: None (occurrence: None)
  Receive Date: 20060516
  Receipt Date: 20060505
  Transmission Date: 20061013
  Serious: No
  Sender: FDA-Public Use
  Company Number: FR200601004423

PATIENT
  Age: 33 Year
  Sex: Male

DRUGS (6)
  1. OLANZAPINE [Suspect]
     Dosage: 7.5 MG DAILY (1/D) ORAL
     Route: 048
     Dates: start: 20060119, end: 20060119
  2. ZYPREXA [Suspect]
     Indication: SCHIZOPHRENIA
     Dosage: 10 MG DAILY (1/D) ORAL
     Route: 048
     Dates: start: 20060120, end: 20060123
  3. TERCIAN (CYAMEMAZINE) [Concomitant]
  4. OMEPRAZOLE [Concomitant]
  5. ACETAMINOPHEN [Concomitant]
  6. LEPTICUR (TROPATEPINE HYDROCHLORIDE) [Concomitant]

REACTIONS (2)
  - CONDITION AGGRAVATED [None]
  - NEUTROPENIA [None]
